FAERS Safety Report 5366421-8 (Version None)
Quarter: 2007Q2

REPORT INFORMATION
  Report Type: 
  Country: None (occurrence: None)
  Receive Date: 20070622
  Receipt Date: 20070619
  Transmission Date: 20071010
  Serious: Yes (Other)
  Sender: FDA-Public Use
  Company Number: PHEH2007US05072

PATIENT
  Age: 69 Year
  Sex: Female

DRUGS (10)
  1. BYETTA [Concomitant]
     Dosage: 10 UG, BID
     Route: 058
  2. ZYRTEC [Concomitant]
     Dosage: UNK, UNK
  3. ZELNORM [Suspect]
     Indication: IRRITABLE BOWEL SYNDROME
     Dosage: 6 MG, BID
     Route: 048
     Dates: start: 20040101, end: 20070331
  4. PEPCID [Concomitant]
  5. ZETIA [Concomitant]
  6. METFORMIN HCL [Concomitant]
     Dosage: 500 MG, TID
     Route: 048
  7. AVANDIA [Concomitant]
  8. GLYBURIDE [Concomitant]
     Route: 048
  9. JANUVIA [Concomitant]
     Dosage: 50 MG, QD
     Route: 048
  10. DIOVAN [Concomitant]
     Dosage: 160 MG, QD
     Route: 048

REACTIONS (13)
  - ANGIOEDEMA [None]
  - DERMATITIS BULLOUS [None]
  - ERYTHEMA [None]
  - ERYTHEMA OF EYELID [None]
  - EYELID OEDEMA [None]
  - GASTRIC POLYPS [None]
  - HEADACHE [None]
  - HYPERSENSITIVITY [None]
  - LUNG NEOPLASM [None]
  - POLYP [None]
  - PRURITUS [None]
  - RHINORRHOEA [None]
  - SWELLING FACE [None]
